FAERS Safety Report 4939425-4 (Version None)
Quarter: 2006Q1

REPORT INFORMATION
  Report Type: 
  Country: None (occurrence: None)
  Receive Date: 20060310
  Receipt Date: 20060228
  Transmission Date: 20060701
  Serious: Yes (Hospitalization)
  Sender: FDA-Public Use
  Company Number: GB-BRISTOL-MYERS SQUIBB COMPANY-13306105

PATIENT
  Age: 57 Year
  Sex: Male
  Weight: 46 kg

DRUGS (7)
  1. CYCLOPHOSPHAMIDE [Suspect]
     Indication: LUNG NEOPLASM MALIGNANT
     Route: 042
     Dates: start: 20050925, end: 20050925
  2. DOXORUBICIN HCL [Suspect]
     Indication: LUNG NEOPLASM MALIGNANT
     Route: 042
     Dates: start: 20050925, end: 20050925
  3. VINCRISTINE SULFATE [Suspect]
     Indication: LUNG NEOPLASM MALIGNANT
     Route: 042
     Dates: start: 20050925, end: 20050925
  4. ACETAMINOPHEN [Concomitant]
     Route: 048
  5. OMEPRAZOLE [Concomitant]
     Route: 048
  6. CYCLIZINE [Concomitant]
     Route: 048
  7. DEXAMETHASONE [Concomitant]
     Route: 048

REACTIONS (2)
  - NEUTROPENIC SEPSIS [None]
  - PANCYTOPENIA [None]
